FAERS Safety Report 23679634 (Version 2)
Quarter: 2024Q2

REPORT INFORMATION
  Report Type: Report from Study
  Country: US (occurrence: US)
  Receive Date: 20240327
  Receipt Date: 20240405
  Transmission Date: 20240716
  Serious: Yes (Hospitalization)
  Sender: FDA-Public Use
  Company Number: US-ABBVIE-5689494

PATIENT
  Age: 27 Year
  Sex: Female

DRUGS (2)
  1. HUMIRA [Suspect]
     Active Substance: ADALIMUMAB
     Indication: Crohn^s disease
     Dosage: FORM STRENGTH WAS 40 MILLIGRAM.?CITRATE FREE.
     Route: 058
     Dates: start: 20200309, end: 2023
  2. HUMIRA [Suspect]
     Active Substance: ADALIMUMAB
     Dosage: FORM STRENGTH WAS 40 MILLIGRAM.?CITRATE FREE.
     Route: 058
     Dates: start: 202401

REACTIONS (4)
  - Pre-eclampsia [Recovered/Resolved]
  - Live birth [Unknown]
  - Vaginal haemorrhage [Recovered/Resolved]
  - Maternal exposure during pregnancy [Unknown]

NARRATIVE: CASE EVENT DATE: 20230702
